FAERS Safety Report 9889318 (Version 2)
Quarter: 2014Q1

REPORT INFORMATION
  Report Type: Report from Study
  Country: US (occurrence: US)
  Receive Date: 20140211
  Receipt Date: 20140211
  Transmission Date: 20141002
  Serious: Yes (Hospitalization, Other)
  Sender: FDA-Public Use
  Company Number: US-ABBVIE-13P-163-1139231-00

PATIENT
  Age: 63 Year
  Sex: Male
  Weight: 99.88 kg

DRUGS (20)
  1. HUMIRA [Suspect]
     Indication: PSORIATIC ARTHROPATHY
     Dates: start: 201303, end: 20140112
  2. DICLOFENAC [Interacting]
     Indication: PAIN
  3. PREVACID [Interacting]
     Indication: GASTROOESOPHAGEAL REFLUX DISEASE
     Dosage: 30MG DAILY
  4. COLCRYS [Concomitant]
     Indication: CHONDROCALCINOSIS PYROPHOSPHATE
  5. BENAZEPRIL [Concomitant]
     Indication: HYPERTENSION
  6. COREG [Concomitant]
     Indication: HYPERTENSION
  7. CELEXA [Concomitant]
     Indication: ANXIETY
     Dosage: 40MG DAILY
  8. LASIX [Concomitant]
     Indication: DIURETIC THERAPY
  9. ECOTRIN [Concomitant]
     Indication: CARDIOVASCULAR EVENT PROPHYLAXIS
     Dosage: 325 MG
  10. LIPITOR [Concomitant]
     Indication: BLOOD CHOLESTEROL INCREASED
     Dosage: 40MG DAILY
  11. POTASSIUM [Concomitant]
     Indication: MINERAL SUPPLEMENTATION
     Dosage: 20MG DAILY
  12. VITAMIN D [Concomitant]
     Indication: VITAMIN SUPPLEMENTATION
  13. ASPIRIN [Concomitant]
     Indication: PRODUCT USED FOR UNKNOWN INDICATION
  14. PROCRIT [Concomitant]
     Indication: PRODUCT USED FOR UNKNOWN INDICATION
  15. AMBIEN [Concomitant]
     Indication: PRODUCT USED FOR UNKNOWN INDICATION
     Dosage: HS
  16. XANAX [Concomitant]
     Indication: PRODUCT USED FOR UNKNOWN INDICATION
  17. VOLTAREN [Concomitant]
     Indication: PRODUCT USED FOR UNKNOWN INDICATION
  18. CYCLOBENZAPRINE [Concomitant]
     Indication: PRODUCT USED FOR UNKNOWN INDICATION
  19. VITAMIN D2 [Concomitant]
     Indication: PRODUCT USED FOR UNKNOWN INDICATION
  20. CALCIUM [Concomitant]
     Indication: MINERAL SUPPLEMENTATION

REACTIONS (15)
  - Blood magnesium decreased [Recovered/Resolved]
  - Cardiac failure [Not Recovered/Not Resolved]
  - Malaise [Not Recovered/Not Resolved]
  - Nausea [Not Recovered/Not Resolved]
  - Malaise [Unknown]
  - Nausea [Unknown]
  - Abdominal discomfort [Unknown]
  - Nausea [Not Recovered/Not Resolved]
  - Diarrhoea [Recovered/Resolved]
  - Blood calcium decreased [Recovered/Resolved]
  - Blood potassium decreased [Recovered/Resolved]
  - Drug interaction [Recovered/Resolved]
  - Joint swelling [Not Recovered/Not Resolved]
  - Arthralgia [Not Recovered/Not Resolved]
  - Gait disturbance [Not Recovered/Not Resolved]
